FAERS Safety Report 6389542-X (Version None)
Quarter: 2009Q4

REPORT INFORMATION
  Report Type: 
  Country: None (occurrence: None)
  Receive Date: 20091006
  Receipt Date: 20090926
  Transmission Date: 20100525
  Serious: Yes (Hospitalization)
  Sender: FDA-Public Use
  Company Number: US-AMGEN-QUU366561

PATIENT
  Sex: Female

DRUGS (2)
  1. ENBREL [Suspect]
     Indication: RHEUMATOID ARTHRITIS
     Route: 058
     Dates: start: 20031030
  2. ENBREL [Suspect]
     Indication: PSORIATIC ARTHROPATHY

REACTIONS (16)
  - ABDOMINAL DISTENSION [None]
  - ABDOMINAL PAIN [None]
  - GALLBLADDER OPERATION [None]
  - GASTRIC BYPASS [None]
  - GASTRIC PERFORATION [None]
  - IMPAIRED HEALING [None]
  - INCISIONAL HERNIA [None]
  - INFLAMMATION [None]
  - INTESTINAL OBSTRUCTION [None]
  - JOINT STIFFNESS [None]
  - LOCAL SWELLING [None]
  - MEDICAL DEVICE COMPLICATION [None]
  - NECK PAIN [None]
  - PULMONARY EMBOLISM [None]
  - RHEUMATOID ARTHRITIS [None]
  - SEPSIS [None]
